FAERS Safety Report 6804253-1 (Version None)
Quarter: 2010Q2

REPORT INFORMATION
  Report Type: 
  Country: None (occurrence: None)
  Receive Date: 20100628
  Receipt Date: 20070206
  Transmission Date: 20101027
  Serious: No
  Sender: FDA-Public Use
  Company Number: US-PFIZER INC-2007002029

PATIENT
  Sex: Male
  Weight: 68.04 kg

DRUGS (5)
  1. GEODON [Suspect]
     Indication: MANIA
     Dates: start: 20060601
  2. GEODON [Suspect]
     Indication: BIPOLAR DISORDER
  3. SEROQUEL [Concomitant]
  4. LAMICTAL [Concomitant]
  5. KLONOPIN [Concomitant]

REACTIONS (3)
  - HEADACHE [None]
  - MALE SEXUAL DYSFUNCTION [None]
  - PARAESTHESIA [None]
